FAERS Safety Report 20549955 (Version 2)
Quarter: 2022Q1

REPORT INFORMATION
  Report Type: Report from Study
  Country: CN (occurrence: CN)
  Receive Date: 20220304
  Receipt Date: 20220316
  Transmission Date: 20220424
  Serious: Yes (Life-Threatening, Hospitalization)
  Sender: FDA-Public Use
  Company Number: CN-BoehringerIngelheim-2021-BI-139544

PATIENT
  Age: 62 Year
  Sex: Male
  Weight: 48 kg

DRUGS (16)
  1. ALTEPLASE [Suspect]
     Active Substance: ALTEPLASE
     Indication: Ischaemic stroke
     Route: 042
     Dates: start: 20211115, end: 20211115
  2. EDARAVONE [Concomitant]
     Active Substance: EDARAVONE
     Indication: Ischaemic stroke
     Dosage: IV GTT
     Route: 042
     Dates: start: 20211115
  3. NALOXONE [Concomitant]
     Active Substance: NALOXONE
     Indication: Ischaemic stroke
     Dosage: IV GTT
     Route: 042
     Dates: start: 20211116
  4. GLYCEROL AND FRUCTOSE [Concomitant]
     Indication: Brain oedema
     Route: 042
     Dates: start: 20211115, end: 20211115
  5. GLYCEROL AND FRUCTOSE [Concomitant]
     Indication: Prophylaxis
     Route: 042
     Dates: start: 20211116, end: 20211119
  6. GLYCEROL AND FRUCTOSE [Concomitant]
     Route: 042
     Dates: start: 20211120
  7. FUROSEMIDE [Concomitant]
     Active Substance: FUROSEMIDE
     Indication: Brain oedema
     Dosage: IV GTT
     Route: 042
     Dates: start: 20211115, end: 20211115
  8. FUROSEMIDE [Concomitant]
     Active Substance: FUROSEMIDE
     Dosage: IV GTT
     Route: 042
     Dates: start: 20211116, end: 20211118
  9. FUROSEMIDE [Concomitant]
     Active Substance: FUROSEMIDE
     Route: 042
     Dates: start: 20211119, end: 20211210
  10. ATORVASTATIN CALCIUM [Concomitant]
     Active Substance: ATORVASTATIN CALCIUM
     Indication: Ischaemic stroke
     Dosage: QN
     Dates: start: 20211116
  11. MANNITOL [Concomitant]
     Active Substance: MANNITOL
     Indication: Brain oedema
     Route: 042
     Dates: start: 20211115, end: 20211115
  12. MANNITOL [Concomitant]
     Active Substance: MANNITOL
     Indication: Prophylaxis
     Route: 042
     Dates: start: 20211116, end: 20211119
  13. MANNITOL [Concomitant]
     Active Substance: MANNITOL
     Route: 042
     Dates: start: 20211122, end: 20211213
  14. SODIUM CHLORIDE [Concomitant]
     Active Substance: SODIUM CHLORIDE
     Indication: Brain oedema
     Route: 042
     Dates: start: 20211115, end: 20211115
  15. SODIUM CHLORIDE [Concomitant]
     Active Substance: SODIUM CHLORIDE
     Indication: Prophylaxis
     Route: 042
     Dates: start: 20211116, end: 20211119
  16. SODIUM CHLORIDE [Concomitant]
     Active Substance: SODIUM CHLORIDE
     Route: 042
     Dates: start: 20211120

REACTIONS (3)
  - Brain herniation [Recovered/Resolved with Sequelae]
  - Brain oedema [Not Recovered/Not Resolved]
  - Pneumonia [Not Recovered/Not Resolved]

NARRATIVE: CASE EVENT DATE: 20211116
